FAERS Safety Report 21383220 (Version 1)
Quarter: 2022Q3

REPORT INFORMATION
  Report Type: Report from Study
  Country: US (occurrence: US)
  Receive Date: 20220927
  Receipt Date: 20220927
  Transmission Date: 20221027
  Serious: Yes (Other)
  Sender: FDA-Public Use
  Company Number: US-ABBVIE-4130953

PATIENT
  Sex: Male

DRUGS (2)
  1. IMBRUVICA [Suspect]
     Active Substance: IBRUTINIB
     Indication: Chronic lymphocytic leukaemia
     Route: 048
  2. Johnson + Johnson [Concomitant]
     Indication: COVID-19 immunisation
     Dosage: 1 IN ONCE, FIRST DOSE
     Dates: start: 20210330, end: 20210330

REACTIONS (4)
  - Prostate cancer [Unknown]
  - COVID-19 [Unknown]
  - Temperature intolerance [Unknown]
  - Asthenia [Unknown]
